FAERS Safety Report 6782888-2 (Version None)
Quarter: 2010Q2

REPORT INFORMATION
  Report Type: 
  Country: None (occurrence: None)
  Receive Date: 20100622
  Receipt Date: 20100615
  Transmission Date: 20101027
  Serious: Yes (Hospitalization)
  Sender: FDA-Public Use
  Company Number: US-BIOGENIDEC-2010BI012661

PATIENT
  Age: 43 Year
  Sex: Female

DRUGS (11)
  1. TYSABRI [Suspect]
     Indication: MULTIPLE SCLEROSIS
     Route: 042
     Dates: start: 20080520, end: 20100309
  2. NEURONTIN [Concomitant]
  3. AMBIEN [Concomitant]
  4. MECLIZINE [Concomitant]
  5. ZONEGRAN [Concomitant]
  6. PHENERGAN [Concomitant]
  7. POTASSIUM [Concomitant]
  8. ARICEPT [Concomitant]
  9. ZANAFLEX [Concomitant]
  10. HCTZ [Concomitant]
  11. ZOCOR [Concomitant]

REACTIONS (5)
  - GASTRITIS [None]
  - HEADACHE [None]
  - HYPOAESTHESIA [None]
  - OESOPHAGITIS ULCERATIVE [None]
  - PAIN [None]
